FAERS Safety Report 19198920 (Version 1)
Quarter: 2021Q2

REPORT INFORMATION
  Report Type: Spontaneous
  Country: US (occurrence: US)
  Receive Date: 20210429
  Receipt Date: 20210429
  Transmission Date: 20210717
  Serious: Yes (Other)
  Sender: FDA-Public Use
  Company Number: US-ROCHE-2646670

PATIENT
  Age: 59 Year
  Sex: Female
  Weight: 61.29 kg

DRUGS (3)
  1. SYNTHROID [Concomitant]
     Active Substance: LEVOTHYROXINE SODIUM
     Indication: HYPOTHYROIDISM
     Route: 048
  2. KADCYLA [Suspect]
     Active Substance: ADO-TRASTUZUMAB EMTANSINE
     Indication: BREAST CANCER STAGE II
     Dosage: ONGOING: YES
     Route: 042
     Dates: start: 20200501
  3. CABERGOLINE. [Concomitant]
     Active Substance: CABERGOLINE
     Indication: BLOOD PROLACTIN INCREASED
     Route: 048

REACTIONS (1)
  - Neutropenia [Not Recovered/Not Resolved]

NARRATIVE: CASE EVENT DATE: 20200716
